FAERS Safety Report 5209245-4 (Version None)
Quarter: 2006Q4

REPORT INFORMATION
  Report Type: 
  Country: None (occurrence: None)
  Receive Date: 20061101
  Receipt Date: 20060705
  Transmission Date: 20070319
  Serious: No
  Sender: FDA-Public Use
  Company Number: 2006PV016997

PATIENT
  Age: 56 Year
  Sex: Female
  Weight: 118.3888 kg

DRUGS (5)
  1. SYMLIN [Suspect]
     Indication: DIABETES MELLITUS NON-INSULIN-DEPENDENT
     Dosage: SEE IMAGE
     Route: 058
     Dates: start: 20060629, end: 20060701
  2. SYMLIN [Suspect]
     Indication: DIABETES MELLITUS NON-INSULIN-DEPENDENT
     Dosage: SEE IMAGE
     Route: 058
     Dates: start: 20060702
  3. ACTOS /USA/ [Concomitant]
  4. LANTUS [Concomitant]
  5. NOVOLOG [Concomitant]

REACTIONS (5)
  - DIARRHOEA [None]
  - DYSGEUSIA [None]
  - NAUSEA [None]
  - PYREXIA [None]
  - VOMITING [None]
